FAERS Safety Report 7744104-4 (Version None)
Quarter: 2011Q3

REPORT INFORMATION
  Report Type: 
  Country: None (occurrence: None)
  Receive Date: 20110912
  Receipt Date: 20110830
  Transmission Date: 20111222
  Serious: No
  Sender: FDA-Public Use
  Company Number: US-ROXANE LABORATORIES, INC.-2011-RO-01236RO

PATIENT
  Sex: Male

DRUGS (1)
  1. RAMIPRIL [Suspect]
     Indication: BLOOD PRESSURE ABNORMAL
     Dates: start: 20080711

REACTIONS (4)
  - DYSPNOEA [None]
  - FATIGUE [None]
  - VISION BLURRED [None]
  - ARTHRALGIA [None]
